FAERS Safety Report 6256418-8 (Version None)
Quarter: 2009Q3

REPORT INFORMATION
  Report Type: 
  Country: None (occurrence: None)
  Receive Date: 20090701
  Receipt Date: 20090701
  Transmission Date: 20100115
  Serious: No
  Sender: FDA-Public Use
  Company Number: None

PATIENT
  Sex: Female
  Weight: 62.5964 kg

DRUGS (3)
  1. CYCLOBENAZPRINE [Suspect]
     Indication: ARTHRALGIA
     Dosage: 5 MG TID PO
     Route: 048
     Dates: start: 20090625, end: 20090628
  2. CYCLOBENAZPRINE [Suspect]
     Indication: BACK PAIN
     Dosage: 5 MG TID PO
     Route: 048
     Dates: start: 20090625, end: 20090628
  3. CYCLOBENAZPRINE [Suspect]
     Indication: INTERVERTEBRAL DISC DEGENERATION
     Dosage: 5 MG TID PO
     Route: 048
     Dates: start: 20090625, end: 20090628

REACTIONS (4)
  - NIGHTMARE [None]
  - POOR QUALITY SLEEP [None]
  - SENSORY DISTURBANCE [None]
  - SOMNOLENCE [None]
